FAERS Safety Report 4652386-0 (Version None)
Quarter: 2005Q2

REPORT INFORMATION
  Report Type: 
  Country: None (occurrence: None)
  Receive Date: 20050504
  Receipt Date: 20041019
  Transmission Date: 20051028
  Serious: Yes (Life-Threatening, Hospitalization, Disabling)
  Sender: FDA-Public Use
  Company Number: US-MERCK-0410USA03026

PATIENT
  Age: 67 Year
  Sex: Male
  Weight: 97 kg

DRUGS (5)
  1. VIOXX [Suspect]
     Indication: OSTEOARTHRITIS
     Route: 048
     Dates: start: 20020829, end: 20041027
  2. ASPIRIN [Concomitant]
     Indication: PROPHYLAXIS
     Route: 048
     Dates: start: 19800101
  3. BUMETANIDE [Concomitant]
     Indication: FLUID RETENTION
     Route: 048
     Dates: start: 20000101
  4. SEREVENT [Concomitant]
     Route: 065
  5. QUININE SULFATE [Concomitant]
     Route: 065

REACTIONS (8)
  - ANGINA UNSTABLE [None]
  - ATHEROSCLEROSIS [None]
  - CORONARY ARTERY DISEASE [None]
  - DIABETES MELLITUS [None]
  - DYSLIPIDAEMIA [None]
  - MASS [None]
  - MYOCARDIAL INFARCTION [None]
  - PERIPHERAL VASCULAR DISORDER [None]
